FAERS Safety Report 12559306 (Version 7)
Quarter: 2017Q3

REPORT INFORMATION
  Report Type: Report from Study
  Country: PL (occurrence: PL)
  Receive Date: 20160715
  Receipt Date: 20170712
  Transmission Date: 20171127
  Serious: Yes (Hospitalization)
  Sender: FDA-Public Use
  Company Number: PL-ROCHE-1792028

PATIENT
  Age: 79 Year
  Sex: Female
  Weight: 70 kg

DRUGS (19)
  1. VEMURAFENIB. [Suspect]
     Active Substance: VEMURAFENIB
     Indication: METASTATIC MALIGNANT MELANOMA
     Dosage: DATE OF MOST RECENT DOSE PRIOR TO THE EVENT OF RESPIRATORY INFECTION ONSET: 20/JUN/2016 OF 960 MG?DA
     Route: 048
     Dates: start: 20160611
  2. OXYDOLOR [Concomitant]
     Route: 065
     Dates: start: 2016
  3. CLEXANE [Concomitant]
     Active Substance: ENOXAPARIN SODIUM
     Indication: CARDIAC FAILURE
     Route: 065
     Dates: start: 20160705
  4. TRIFAS [Concomitant]
     Route: 065
     Dates: start: 20160715, end: 2016
  5. PROCORALAN [Concomitant]
     Active Substance: IVABRADINE
     Route: 065
     Dates: start: 20160715, end: 2016
  6. LERIVON [Concomitant]
     Active Substance: MIANSERIN HYDROCHLORIDE
     Route: 065
     Dates: start: 20160715, end: 2016
  7. VIVACOR (POLAND) [Concomitant]
     Indication: CARDIAC FAILURE
     Route: 065
     Dates: start: 20160705
  8. LORAFEN [Concomitant]
     Active Substance: LORAZEPAM
     Route: 065
     Dates: end: 2016
  9. PREDUCTAL MR [Concomitant]
     Active Substance: TRIMETAZIDINE DIHYDROCHLORIDE
     Route: 065
     Dates: start: 20160715, end: 2016
  10. IPP (PANTOPRAZOL) [Concomitant]
     Indication: CARDIAC FAILURE
     Route: 065
     Dates: start: 20160705
  11. ATRODIL [Concomitant]
     Indication: CARDIAC FAILURE
     Route: 065
     Dates: start: 20160705
  12. COBIMETINIB. [Suspect]
     Active Substance: COBIMETINIB
     Indication: METASTATIC MALIGNANT MELANOMA
     Dosage: DATE OF MOST RECENT DOSE PRIOR TO THE EVENT OF RESPIRATORY TRACT INFECTION ONSET: 20/JUN/2016 OF 80
     Route: 048
     Dates: start: 20160611, end: 20160709
  13. ATORIS [Concomitant]
     Active Substance: ATORVASTATIN CALCIUM
     Indication: CARDIAC FAILURE
     Route: 065
  14. ENTEROL (POLAND) [Concomitant]
     Indication: CARDIAC FAILURE
     Route: 065
     Dates: start: 20160705, end: 20160709
  15. SPASMALGON [Concomitant]
     Active Substance: FENPIVERINIUM BROMIDE\METAMIZOLE SODIUM\PITOFENONE HYDROCHLORIDE
     Route: 065
     Dates: start: 201606, end: 201606
  16. VIVACE (POLAND) [Concomitant]
     Route: 065
     Dates: start: 20160715, end: 2016
  17. DIUVER [Concomitant]
     Active Substance: TORSEMIDE
     Indication: CARDIAC FAILURE
     Route: 065
     Dates: start: 20160705
  18. EPLENOCARD [Concomitant]
     Indication: CARDIAC FAILURE
     Route: 065
     Dates: start: 20160705
  19. CIPROPOL [Concomitant]
     Indication: CARDIAC FAILURE
     Route: 065
     Dates: start: 20160705, end: 20160709

REACTIONS (3)
  - Respiratory tract infection [Recovered/Resolved]
  - Cardiac failure [Recovered/Resolved]
  - Gastrointestinal obstruction [Recovered/Resolved]

NARRATIVE: CASE EVENT DATE: 20160620
